FAERS Safety Report 9464903 (Version 3)
Quarter: 2013Q3

REPORT INFORMATION
  Report Type: Spontaneous
  Country: US (occurrence: US)
  Receive Date: 20130819
  Receipt Date: 20130919
  Transmission Date: 20140515
  Serious: Yes (Hospitalization, Disabling, Other)
  Sender: FDA-Public Use
  Company Number: US-009507513-1103USA00831

PATIENT
  Sex: Female
  Weight: 114.97 kg

DRUGS (14)
  1. FOSAMAX [Suspect]
     Indication: OSTEOPENIA
     Dosage: 5 MG, UNK
     Route: 048
  2. FOSAMAX [Suspect]
     Indication: OSTEOPOROSIS
     Dosage: 10 MG, QD
     Route: 048
     Dates: start: 20010303, end: 20020904
  3. FOSAMAX [Suspect]
     Dosage: 70 MG, QW
     Route: 048
     Dates: end: 20090903
  4. FOSAMAX [Suspect]
     Route: 048
     Dates: start: 200802
  5. FOSAMAX [Suspect]
     Route: 048
     Dates: start: 200802
  6. ALENDRONATE SODIUM [Suspect]
     Indication: OSTEOPENIA
     Dosage: 70 MG, UNK
     Route: 048
     Dates: end: 20091208
  7. CALCIUM (UNSPECIFIED) (+) VITAMIN D (UNSPECIFIED) [Concomitant]
     Dosage: 600 MG, QD
     Dates: start: 1999
  8. VITAMIN E [Concomitant]
     Dosage: 400 MG, QD
     Dates: start: 1999
  9. ESTRADIOL [Concomitant]
     Indication: HORMONE REPLACEMENT THERAPY
  10. PREMARIN [Concomitant]
     Indication: HORMONE REPLACEMENT THERAPY
     Dosage: 0.3 MG, QD
     Route: 048
  11. PROVERA [Concomitant]
     Indication: HORMONE REPLACEMENT THERAPY
     Dosage: 2.5 MG, QD
     Route: 048
  12. LISINOPRIL [Concomitant]
     Indication: HYPERTENSION
  13. MAXIDE [Concomitant]
  14. ZESTRIL [Concomitant]

REACTIONS (14)
  - Femur fracture [Recovering/Resolving]
  - Open reduction of fracture [Unknown]
  - Femur fracture [Unknown]
  - Open reduction of fracture [Unknown]
  - Joint dislocation [Unknown]
  - Joint dislocation reduction [Unknown]
  - Low turnover osteopathy [Not Recovered/Not Resolved]
  - Femur fracture [Not Recovered/Not Resolved]
  - Uterine leiomyoma [Unknown]
  - Haemorrhagic anaemia [Unknown]
  - Osteoarthritis [Unknown]
  - Tendonitis [Unknown]
  - Essential thrombocythaemia [Unknown]
  - Pain in extremity [Unknown]
